FAERS Safety Report 5129647-4 (Version None)
Quarter: 2006Q4

REPORT INFORMATION
  Report Type: 
  Country: None (occurrence: None)
  Receive Date: 20061018
  Receipt Date: 20061004
  Transmission Date: 20070319
  Serious: Yes (Death, Hospitalization)
  Sender: FDA-Public Use
  Company Number: US-ROCHE-466159

PATIENT
  Age: 76 Year
  Sex: Female

DRUGS (1)
  1. XELODA [Suspect]
     Indication: RECTAL CANCER
     Route: 048
     Dates: start: 20060717, end: 20060721

REACTIONS (6)
  - ACUTE RESPIRATORY FAILURE [None]
  - INFECTION [None]
  - PHARYNGOLARYNGEAL PAIN [None]
  - RENAL FAILURE ACUTE [None]
  - SEPSIS [None]
  - SWELLING FACE [None]
